FAERS Safety Report 16627157 (Version 1)
Quarter: 2019Q3

REPORT INFORMATION
  Report Type: Spontaneous
  Country: US (occurrence: US)
  Receive Date: 20190724
  Receipt Date: 20190724
  Transmission Date: 20191004
  Serious: No
  Sender: FDA-Public Use
  Company Number: US-TEVA-2019-US-1084070

PATIENT
  Sex: Male

DRUGS (23)
  1. PRILOSEC [Concomitant]
     Active Substance: OMEPRAZOLE MAGNESIUM
     Dosage: 20 MILLIGRAM DAILY;
  2. VOLTAREN [Concomitant]
     Active Substance: DICLOFENAC SODIUM
     Dosage: AS NEEDED
  3. KLOR-CON [Concomitant]
     Active Substance: POTASSIUM CHLORIDE
     Dosage: 10 MEQ 3/DAY
  4. REGLAN [Concomitant]
     Active Substance: METOCLOPRAMIDE HYDROCHLORIDE
     Dosage: 10 MILLIGRAM DAILY;
  5. CBD OIL 50 MG [Concomitant]
     Indication: PAIN
     Dosage: AS RECOMMENDED
  6. AJOVY [Suspect]
     Active Substance: FREMANEZUMAB-VFRM
     Indication: MIGRAINE PROPHYLAXIS
     Dates: start: 20181212
  7. IMITREX [Concomitant]
     Active Substance: SUMATRIPTAN SUCCINATE
     Dosage: 18 MONTHS OF TABLET
  8. FIORICET [Concomitant]
     Active Substance: ACETAMINOPHEN\BUTALBITAL\CAFFEINE
     Dosage: AS NEEDED 3-4 TIMES PER WEEK
  9. IMITREX [Concomitant]
     Active Substance: SUMATRIPTAN SUCCINATE
     Dosage: 4 MONTHS OF INJECTION
  10. ACETAMINOPHEN. [Concomitant]
     Active Substance: ACETAMINOPHEN
     Dosage: AS NEEDED A FEW TIMES PER WEEK
  11. ZYRTEC [Concomitant]
     Active Substance: CETIRIZINE HYDROCHLORIDE
     Dosage: 10 MILLIGRAM DAILY;
  12. CIALIS [Concomitant]
     Active Substance: TADALAFIL
     Dosage: 20 MG AS NEEDED
  13. MIGRANAL [Concomitant]
     Active Substance: DIHYDROERGOTAMINE MESYLATE
     Dosage: PACKAGE OF 6
  14. TERAZOSIN [Concomitant]
     Active Substance: TERAZOSIN HYDROCHLORIDE
     Indication: BLOOD PRESSURE ABNORMAL
     Dosage: 5 MILLIGRAM DAILY;
     Dates: start: 2012
  15. ULTRAM [Concomitant]
     Active Substance: TRAMADOL HYDROCHLORIDE
     Indication: HEADACHE
     Dosage: AS NEEDED AVERAGING 2 A DAY FOR HEADACHE 4 DAYS/WEEK
  16. CLONAZEPAM. [Concomitant]
     Active Substance: CLONAZEPAM
     Indication: INSOMNIA
     Dosage: AS NEEDED
  17. CLONAZEPAM. [Concomitant]
     Active Substance: CLONAZEPAM
     Indication: ANXIETY
  18. COMPAZINE [Concomitant]
     Active Substance: PROCHLORPERAZINE MALEATE
     Dosage: RARELY
  19. LOVASARTAN [Concomitant]
  20. ANDROGEL [Concomitant]
     Active Substance: TESTOSTERONE
     Dosage: 10 GRAM DAILY;
  21. AIMOVIG [Concomitant]
     Active Substance: ERENUMAB-AOOE
     Dosage: 6-7 WEEKS AGO AND THEN 13-SEP-2018; 140 MG 10-2018; 11-2018.
  22. CHLORTHALIDONE. [Concomitant]
     Active Substance: CHLORTHALIDONE
     Dosage: 25 MILLIGRAM DAILY;
  23. CBD OIL 50 MG [Concomitant]
     Indication: ANXIETY

REACTIONS (3)
  - Migraine [Unknown]
  - Dizziness [Recovering/Resolving]
  - Therapeutic response shortened [Unknown]
